FAERS Safety Report 12716375 (Version 2)
Quarter: 2016Q3

REPORT INFORMATION
  Report Type: Spontaneous
  Country: US (occurrence: US)
  Receive Date: 20160906
  Receipt Date: 20160908
  Transmission Date: 20161109
  Serious: No
  Sender: FDA-Public Use
  Company Number: US-PFIZER INC-2016416574

PATIENT
  Sex: Female

DRUGS (1)
  1. XANAX [Suspect]
     Active Substance: ALPRAZOLAM
     Dosage: 0.25 MG, UNK (CUT THE 0.5MG (STANDARD RELEASE) IN HALF)/ GET 0.5MG

REACTIONS (2)
  - Dysgeusia [Unknown]
  - Product odour abnormal [Unknown]
